FAERS Safety Report 21305569 (Version 1)
Quarter: 2022Q3

REPORT INFORMATION
  Report Type: Report from Study
  Country: US (occurrence: None)
  Receive Date: 20220908
  Receipt Date: 20220908
  Transmission Date: 20221026
  Serious: Yes (Hospitalization, Other)
  Sender: FDA-Public Use
  Company Number: US-ROCHE-1821421

PATIENT
  Age: 57 Year
  Sex: Male
  Weight: 89.4 kg

DRUGS (31)
  1. COBIMETINIB [Suspect]
     Active Substance: COBIMETINIB
     Indication: Erdheim-Chester disease
     Route: 048
     Dates: start: 20160310, end: 20160819
  2. COBIMETINIB [Suspect]
     Active Substance: COBIMETINIB
     Dosage: THERAPY WAS RESTARTED ON AN UNSPECIFIED DATE.
     Route: 048
  3. VITAMIN B12 [Concomitant]
     Active Substance: CYANOCOBALAMIN
     Route: 048
  4. CYMBALTA [Concomitant]
     Active Substance: DULOXETINE HYDROCHLORIDE
     Dosage: DELAYED RELEASE
     Route: 048
  5. DEXTROSE [Concomitant]
     Active Substance: DEXTROSE
     Dosage: TAKE 4 EVERY 15 MINUTES UNTILL BLOOD SUGAR IS 70
     Route: 048
  6. LEVOTHYROXINE [Concomitant]
     Active Substance: LEVOTHYROXINE
     Route: 048
  7. LANTUS SOLOSTAR [Concomitant]
     Active Substance: INSULIN GLARGINE
     Dosage: 100 U/ML: 55 UNIT
     Route: 058
  8. LANTUS SOLOSTAR [Concomitant]
     Active Substance: INSULIN GLARGINE
  9. HUMALOG [Concomitant]
     Active Substance: INSULIN LISPRO
     Dosage: KWIKPEN:100 U/ML:  90 DAY
     Route: 058
  10. LANCET [Concomitant]
     Dosage: 1 EACH
     Route: 058
  11. TESTIM [Concomitant]
     Active Substance: TESTOSTERONE
     Dosage: 50 MG/5 G
     Route: 062
  12. GEMFIBROZIL [Concomitant]
     Active Substance: GEMFIBROZIL
     Dosage: 1
     Route: 048
  13. ASPIRIN [Concomitant]
     Active Substance: ASPIRIN
     Route: 048
  14. SULFAMETHOXAZOLE\TRIMETHOPRIM [Concomitant]
     Active Substance: SULFAMETHOXAZOLE\TRIMETHOPRIM
     Dosage: 800 MG /160 MG;
     Route: 048
  15. PREDNISONE [Concomitant]
     Active Substance: PREDNISONE
     Dosage: 2 AM AND 1 PM; 10 MG AND 12 MG
     Route: 048
  16. DOXYCYCLINE HYCLATE [Concomitant]
     Active Substance: DOXYCYCLINE HYCLATE
     Dosage: 1
     Route: 048
  17. OMEPRAZOLE [Concomitant]
     Active Substance: OMEPRAZOLE
     Route: 048
  18. VITAMIN D3 [Concomitant]
     Active Substance: CHOLECALCIFEROL
     Dosage: 5000 U
     Route: 048
  19. ACETAMINOPHEN [Concomitant]
     Active Substance: ACETAMINOPHEN
     Route: 048
  20. METFORMIN [Concomitant]
     Active Substance: METFORMIN HYDROCHLORIDE
     Dosage: EXTENDED RELEASE; 1
  21. RAMIPRIL [Concomitant]
     Active Substance: RAMIPRIL
     Route: 048
  22. PREGABALIN [Concomitant]
     Active Substance: PREGABALIN
     Dosage: 1
     Route: 048
  23. SENNA [Concomitant]
     Active Substance: SENNA LEAF\SENNOSIDES\SENNOSIDES A AND B
     Dosage: 2
     Route: 048
  24. DOCUSATE SODIUM [Concomitant]
     Active Substance: DOCUSATE SODIUM
     Dosage: 1
     Route: 048
  25. METOPROLOL SUCCINATE [Concomitant]
     Active Substance: METOPROLOL SUCCINATE
     Dosage: 50 MG Q AM? 25 MG Q PM
     Route: 048
  26. RIVAROXABAN [Concomitant]
     Active Substance: RIVAROXABAN
  27. POLYETHYLENE GLYCOL [Concomitant]
     Active Substance: POLYETHYLENE GLYCOL
  28. DIAZEPAM [Concomitant]
     Active Substance: DIAZEPAM
  29. MORPHINE SULFATE [Concomitant]
     Active Substance: MORPHINE SULFATE
     Dosage: C-II
  30. CYCLOBENZAPRINE [Concomitant]
     Active Substance: CYCLOBENZAPRINE
  31. XARELTO [Concomitant]
     Active Substance: RIVAROXABAN
     Indication: Atrial fibrillation

REACTIONS (11)
  - Supraventricular tachycardia [Recovered/Resolved]
  - Compression fracture [Unknown]
  - Back pain [Not Recovered/Not Resolved]
  - Spinal fracture [Unknown]
  - Fall [Unknown]
  - Pain [Not Recovered/Not Resolved]
  - Dyspnoea [Unknown]
  - Atrial tachycardia [Unknown]
  - Nausea [Unknown]
  - Vomiting [Unknown]
  - Hyponatraemia [Unknown]

NARRATIVE: CASE EVENT DATE: 20160317
